FAERS Safety Report 4577716-X (Version None)
Quarter: 2005Q1

REPORT INFORMATION
  Report Type: 
  Country: None (occurrence: None)
  Receive Date: 20050127
  Receipt Date: 20040826
  Transmission Date: 20050727
  Serious: No
  Sender: FDA-Public Use
  Company Number: USA040876686

PATIENT
  Age: 47 Year
  Sex: Male

DRUGS (7)
  1. STRATTERA [Suspect]
     Indication: ANXIETY
     Dosage: 18 MG
     Dates: start: 20040822
  2. SEROQUEL [Concomitant]
  3. EFFEXOR [Concomitant]
  4. REMERON [Concomitant]
  5. ALLEGRA [Concomitant]
  6. TRILEPTAL [Concomitant]
  7. FLUTICASONE PROPIONATE W/SALMETEROL [Concomitant]

REACTIONS (1)
  - HYPOKINESIA [None]
